FAERS Safety Report 6232659-0 (Version None)
Quarter: 2009Q2

REPORT INFORMATION
  Report Type: 
  Country: None (occurrence: None)
  Receive Date: 20090617
  Receipt Date: 20090605
  Transmission Date: 20091009
  Serious: Yes (Hospitalization)
  Sender: FDA-Public Use
  Company Number: GR-PFIZER INC-2008152291

PATIENT
  Age: 5 Year

DRUGS (3)
  1. ZITHROMAX [Suspect]
     Indication: TONSILLITIS
     Dosage: UNK
     Route: 048
     Dates: start: 20081117, end: 20081121
  2. ZITHROMAX [Suspect]
     Indication: EAR INFECTION
  3. ZITHROMAX [Suspect]
     Indication: RESPIRATORY TRACT INFECTION

REACTIONS (1)
  - CHROMATURIA [None]
